FAERS Safety Report 7437761-3 (Version None)
Quarter: 2011Q2

REPORT INFORMATION
  Report Type: 
  Country: None (occurrence: None)
  Receive Date: 20110426
  Receipt Date: 20110420
  Transmission Date: 20111010
  Serious: Yes (Other)
  Sender: FDA-Public Use
  Company Number: US-PFIZER INC-2011086669

PATIENT
  Sex: Female
  Weight: 65.306 kg

DRUGS (3)
  1. LYRICA [Suspect]
     Indication: HEADACHE
     Dosage: 50 MG, 2X/DAY
  2. GLIPIZIDE [Concomitant]
     Indication: TYPE 2 DIABETES MELLITUS
     Dosage: UNK
  3. LYRICA [Suspect]
     Indication: NERVE INJURY
     Dosage: UNK
     Route: 048

REACTIONS (1)
  - SURGERY [None]
